FAERS Safety Report 6938128-4 (Version None)
Quarter: 2010Q3

REPORT INFORMATION
  Report Type: 
  Country: None (occurrence: None)
  Receive Date: 20100817
  Receipt Date: 20100706
  Transmission Date: 20110219
  Serious: Yes (Other)
  Sender: FDA-Public Use
  Company Number: 7010198

PATIENT
  Age: 4 Decade
  Sex: Female

DRUGS (2)
  1. NOVOTHYRAL 75 (NOVOTHYRAL) (LEVOTHYROXINE SODIUM, LIOTHYRONIN SODIUM, [Suspect]
     Indication: PRODUCT USED FOR UNKNOWN INDICATION
     Dosage: 75
     Dates: start: 20000101
  2. LEVOTHYROXINE SODIUM [Concomitant]

REACTIONS (3)
  - INFECTION SUSCEPTIBILITY INCREASED [None]
  - LEUKOPENIA [None]
  - WEIGHT INCREASED [None]
